FAERS Safety Report 12422662 (Version 1)
Quarter: 2016Q2

REPORT INFORMATION
  Report Type: Spontaneous
  Country: US (occurrence: US)
  Receive Date: 20160601
  Receipt Date: 20160601
  Transmission Date: 20160815
  Serious: Yes (Death)
  Sender: FDA-Public Use
  Company Number: US-ROCHE-1767462

PATIENT
  Sex: Male

DRUGS (18)
  1. METRONIDAZOL [Concomitant]
     Active Substance: METRONIDAZOLE
     Route: 065
  2. PROCHLORPERAZINE. [Concomitant]
     Active Substance: PROCHLORPERAZINE
     Route: 065
  3. DRONABINOL. [Concomitant]
     Active Substance: DRONABINOL
     Route: 065
  4. LEUCOVORIN CA [Concomitant]
     Route: 042
  5. OXYCOD [Concomitant]
     Dosage: 5-325MG
     Route: 065
  6. DEXAMETHASONE PHOSPHATE [Concomitant]
     Active Substance: DEXAMETHASONE PHOSPHATE
     Route: 042
  7. OXYCODONE [Concomitant]
     Active Substance: OXYCODONE
     Route: 065
  8. FLUOROURACIL. [Concomitant]
     Active Substance: FLUOROURACIL
     Route: 042
  9. NEOMYCIN [Concomitant]
     Active Substance: NEOMYCIN
     Route: 065
  10. ONDANSETRON [Concomitant]
     Active Substance: ONDANSETRON
     Dosage: 4MG/2ML
     Route: 042
  11. LISINOPRIL. [Concomitant]
     Active Substance: LISINOPRIL
     Route: 065
  12. AVASTIN [Suspect]
     Active Substance: BEVACIZUMAB
     Indication: CONSTIPATION
     Dosage: USE AS DIRECTED BY PHYSICIAN
     Route: 042
  13. ADRUCIL [Concomitant]
     Active Substance: FLUOROURACIL
     Route: 042
  14. FUROSEMIDE. [Concomitant]
     Active Substance: FUROSEMIDE
     Route: 065
  15. IRINOTECAN [Concomitant]
     Active Substance: IRINOTECAN
     Dosage: 40MG/2ML
     Route: 042
  16. LIDOCAIN [Concomitant]
     Active Substance: LIDOCAINE
     Route: 065
  17. LORAZEPAM. [Concomitant]
     Active Substance: LORAZEPAM
     Route: 065
  18. SPIRONOLACTON [Concomitant]
     Active Substance: SPIRONOLACTONE
     Route: 065

REACTIONS (1)
  - Death [Fatal]
